FAERS Safety Report 19884339 (Version 1)
Quarter: 2021Q3

REPORT INFORMATION
  Report Type: Spontaneous
  Country: RO (occurrence: RO)
  Receive Date: 20210927
  Receipt Date: 20210927
  Transmission Date: 20211014
  Serious: Yes (Other)
  Sender: FDA-Public Use
  Company Number: RO-BRISTOL-MYERS SQUIBB COMPANY-BMS-2021-094318

PATIENT
  Age: 47 Year
  Sex: Male

DRUGS (10)
  1. IPILIMUMAB [Suspect]
     Active Substance: IPILIMUMAB
     Indication: MALIGNANT MELANOMA
     Dosage: 3 MILLIGRAM/KILOGRAM
     Route: 042
     Dates: start: 202002, end: 202007
  2. ANTIBIOTICS [Concomitant]
     Active Substance: UNSPECIFIED INGREDIENT
     Indication: PRODUCT USED FOR UNKNOWN INDICATION
     Dosage: UNK
     Route: 065
     Dates: start: 202007
  3. ANTIMYCOTIC [Concomitant]
     Indication: PRODUCT USED FOR UNKNOWN INDICATION
     Dosage: UNK
     Route: 065
     Dates: start: 202007
  4. NIVOLUMAB [Suspect]
     Active Substance: NIVOLUMAB
     Indication: MALIGNANT MELANOMA
     Dosage: 1 MILLIGRAM/KILOGRAM
     Route: 042
     Dates: start: 202002, end: 202007
  5. PREDNISON [Concomitant]
     Active Substance: PREDNISONE
     Dosage: 5 MG/DAY
     Route: 065
     Dates: start: 202005
  6. PREDNISON [Concomitant]
     Active Substance: PREDNISONE
     Dosage: 10 MILLIGRAM
     Route: 065
     Dates: start: 202007
  7. PREDNISON [Concomitant]
     Active Substance: PREDNISONE
     Indication: PRODUCT USED FOR UNKNOWN INDICATION
     Dosage: 10 MG/DAY
     Route: 065
     Dates: start: 202003
  8. PREDNISON [Concomitant]
     Active Substance: PREDNISONE
     Dosage: 1.5MG/KGC/DAY CALCULATED DT=110MG WITH THE GRADUAL DECREASE OF THE DOSES
     Route: 065
     Dates: start: 202009, end: 202011
  9. THYROZOL [Concomitant]
     Active Substance: METHIMAZOLE
     Indication: PRODUCT USED FOR UNKNOWN INDICATION
     Dosage: 10 MILLIGRAM, BID
     Route: 065
     Dates: start: 202003
  10. EUTHYROX [Concomitant]
     Active Substance: LEVOTHYROXINE SODIUM
     Indication: PRODUCT USED FOR UNKNOWN INDICATION
     Dosage: 125 MICROGRAM, QD
     Route: 065

REACTIONS (22)
  - Vomiting [Unknown]
  - Constipation [Unknown]
  - Dry skin [Unknown]
  - Pallor [Unknown]
  - Oral candidiasis [Unknown]
  - Autoimmune thyroiditis [Unknown]
  - Autoimmune pancreatitis [Unknown]
  - Faeces discoloured [Unknown]
  - Hypothyroidism [Unknown]
  - Abdominal pain upper [Unknown]
  - Hepatic cytolysis [Unknown]
  - Pneumonitis [Unknown]
  - Tonsillitis bacterial [Unknown]
  - Mucosal inflammation [Unknown]
  - Weight decreased [Unknown]
  - Pharyngeal erythema [Unknown]
  - Hyperthyroidism [Unknown]
  - Rash [Unknown]
  - Asthenia [Unknown]
  - Amylase increased [Unknown]
  - Lipase increased [Unknown]
  - Nausea [Unknown]

NARRATIVE: CASE EVENT DATE: 202003
